FAERS Safety Report 7058674-5 (Version None)
Quarter: 2010Q4

REPORT INFORMATION
  Report Type: 
  Country: None (occurrence: None)
  Receive Date: 20101022
  Receipt Date: 20101015
  Transmission Date: 20110411
  Serious: Yes (Other)
  Sender: FDA-Public Use
  Company Number: CA-ABBOTT-10P-028-0671143-00

PATIENT
  Sex: Female
  Weight: 69.462 kg

DRUGS (4)
  1. HUMIRA [Suspect]
     Indication: RHEUMATOID ARTHRITIS
     Route: 058
     Dates: start: 20091111
  2. PREDNISONE [Concomitant]
     Indication: CROHN'S DISEASE
     Dosage: 1/2 TABLET TWICE A DAY
     Route: 048
  3. ADVIL [Concomitant]
     Indication: PRODUCT USED FOR UNKNOWN INDICATION
  4. CETRAZINE HYDROCHLORIDE [Concomitant]
     Indication: HYPERSENSITIVITY
     Route: 048

REACTIONS (6)
  - ARTHROPOD BITE [None]
  - BLOOD ELECTROLYTES DECREASED [None]
  - GASTROINTESTINAL PAIN [None]
  - INFECTED SKIN ULCER [None]
  - SECRETION DISCHARGE [None]
  - VOMITING [None]
